FAERS Safety Report 8834059 (Version 2)
Quarter: 2012Q4

REPORT INFORMATION
  Report Type: Spontaneous
  Country: US (occurrence: None)
  Receive Date: 20121011
  Receipt Date: 20121011
  Transmission Date: 20130627
  Serious: Yes (Other)
  Sender: FDA-Public Use
  Company Number: None

PATIENT
  Age: 68 Year
  Sex: Female
  Weight: 85.73 kg

DRUGS (1)
  1. METHYLPREDNISOLONE [Suspect]

REACTIONS (13)
  - Pain [None]
  - Drug ineffective [None]
  - Candidiasis [None]
  - Sunburn [None]
  - Photophobia [None]
  - Headache [None]
  - Neck pain [None]
  - Back pain [None]
  - Balance disorder [None]
  - Fall [None]
  - Hip fracture [None]
  - Upper limb fracture [None]
  - Neuritis [None]
